FAERS Safety Report 13180356 (Version 2)
Quarter: 2017Q3

REPORT INFORMATION
  Report Type: Report from Study
  Country: US (occurrence: US)
  Receive Date: 20170202
  Receipt Date: 20170802
  Transmission Date: 20171127
  Serious: Yes (Hospitalization)
  Sender: FDA-Public Use
  Company Number: US-JNJFOC-20160920233

PATIENT
  Age: 92 Year
  Sex: Female

DRUGS (11)
  1. IMBRUVICA [Suspect]
     Active Substance: IBRUTINIB
     Indication: CHRONIC LYMPHOCYTIC LEUKAEMIA
     Route: 048
     Dates: start: 20160823
  2. PRAVASTATIN. [Concomitant]
     Active Substance: PRAVASTATIN
  3. METHAZOLAMIDE. [Concomitant]
     Active Substance: METHAZOLAMIDE
  4. LOSARTAN. [Concomitant]
     Active Substance: LOSARTAN
  5. CELEBREX [Concomitant]
     Active Substance: CELECOXIB
  6. IMBRUVICA [Suspect]
     Active Substance: IBRUTINIB
     Indication: CHRONIC LYMPHOCYTIC LEUKAEMIA
     Route: 048
     Dates: start: 20160820, end: 201610
  7. RANEXA [Concomitant]
     Active Substance: RANOLAZINE
  8. ASPIRIN. [Concomitant]
     Active Substance: ASPIRIN
  9. TYLENOL EXTRA STRENGTH [Concomitant]
     Active Substance: ACETAMINOPHEN
  10. METOPROLOL. [Concomitant]
     Active Substance: METOPROLOL
  11. NEXIUM [Concomitant]
     Active Substance: ESOMEPRAZOLE MAGNESIUM

REACTIONS (5)
  - Myalgia [Unknown]
  - Dizziness [Unknown]
  - Musculoskeletal disorder [Unknown]
  - Muscle spasms [Not Recovered/Not Resolved]
  - Fatigue [Unknown]

NARRATIVE: CASE EVENT DATE: 20160914
